FAERS Safety Report 14418582 (Version 1)
Quarter: 2018Q1

REPORT INFORMATION
  Report Type: Spontaneous
  Country: US (occurrence: US)
  Receive Date: 20180119
  Receipt Date: 20180119
  Transmission Date: 20180509
  Serious: Yes (Hospitalization)
  Sender: FDA-Public Use
  Company Number: None

PATIENT
  Age: 26 Year
  Sex: Female

DRUGS (28)
  1. AMLODIPINE [Concomitant]
     Active Substance: AMLODIPINE BESYLATE
  2. MYCOPHENOLATE [Concomitant]
     Active Substance: MYCOPHENOLIC ACID
  3. FERROUS GLUCONATE [Concomitant]
     Active Substance: FERROUS GLUCONATE
  4. VALCYTE [Concomitant]
     Active Substance: VALGANCICLOVIR HYDROCHLORIDE
  5. NEXIUM [Concomitant]
     Active Substance: ESOMEPRAZOLE MAGNESIUM
  6. LANTUS SOLOSTAR [Concomitant]
     Active Substance: INSULIN GLARGINE
  7. VORICONAZOLE. [Concomitant]
     Active Substance: VORICONAZOLE
  8. ONDANSETRON [Concomitant]
     Active Substance: ONDANSETRON
  9. METOPROLOL TARTRATE. [Concomitant]
     Active Substance: METOPROLOL TARTRATE
  10. LANTUS [Concomitant]
     Active Substance: INSULIN GLARGINE
  11. NEXIUM [Concomitant]
     Active Substance: ESOMEPRAZOLE MAGNESIUM
  12. SUPREP BOWEL SOL PREP [Concomitant]
  13. MEPHYTON [Concomitant]
     Active Substance: PHYTONADIONE
  14. CREON [Concomitant]
     Active Substance: PANCRELIPASE AMYLASE\PANCRELIPASE LIPASE\PANCRELIPASE PROTEASE
  15. VITAMIN D3 [Concomitant]
     Active Substance: CHOLECALCIFEROL
  16. NEEDLE-PEN [Concomitant]
  17. LAMICTAL [Suspect]
     Active Substance: LAMOTRIGINE
     Indication: PRODUCT USED FOR UNKNOWN INDICATION
     Route: 048
     Dates: start: 20130313
  18. TACROLIMUS. [Concomitant]
     Active Substance: TACROLIMUS
  19. MAGNESIUM OX [Concomitant]
  20. SMZ/TMP DS [Concomitant]
     Active Substance: SULFAMETHOXAZOLE\TRIMETHOPRIM
  21. CLINDAMYCIN. [Concomitant]
     Active Substance: CLINDAMYCIN
  22. PREDNISONE. [Concomitant]
     Active Substance: PREDNISONE
  23. METOCLOPRAM [Concomitant]
     Active Substance: METOCLOPRAMIDE
  24. DRONABINOL. [Concomitant]
     Active Substance: DRONABINOL
  25. XOPENEX HFA INHALER [Concomitant]
  26. LYRICA [Concomitant]
     Active Substance: PREGABALIN
  27. NOVOLOG [Concomitant]
     Active Substance: INSULIN ASPART
  28. ZOLPIDEM [Concomitant]
     Active Substance: ZOLPIDEM\ZOLPIDEM TARTRATE

REACTIONS (1)
  - Disease complication [None]

NARRATIVE: CASE EVENT DATE: 20180117
